FAERS Safety Report 6050711-X (Version None)
Quarter: 2009Q1

REPORT INFORMATION
  Report Type: 
  Country: None (occurrence: None)
  Receive Date: 20090126
  Receipt Date: 20090113
  Transmission Date: 20090719
  Serious: Yes (Hospitalization)
  Sender: FDA-Public Use
  Company Number: FR-PFIZER INC-2008022693

PATIENT

DRUGS (12)
  1. BLINDED *PLACEBO [Suspect]
     Indication: CARDIAC FAILURE
     Route: 048
     Dates: start: 20071206, end: 20080207
  2. EPLERENONE [Suspect]
     Indication: CARDIAC FAILURE
     Route: 048
     Dates: start: 20071206, end: 20080207
  3. FUROSEMIDE [Concomitant]
     Route: 048
     Dates: start: 20071211
  4. CANDESARTAN [Concomitant]
     Route: 048
     Dates: start: 20070810
  5. BISOPROLOL [Concomitant]
     Route: 048
     Dates: start: 20070810
  6. AMLODIPINE [Concomitant]
     Route: 048
     Dates: start: 20060227
  7. NICORANDIL [Concomitant]
     Route: 048
     Dates: start: 20060227
  8. ATORVASTATIN CALCIUM [Concomitant]
     Route: 048
     Dates: start: 20071119, end: 20080212
  9. KARDEGIC [Concomitant]
     Route: 048
     Dates: start: 20070810
  10. GLIBENCLAMIDE [Concomitant]
     Route: 048
     Dates: start: 20071119, end: 20080207
  11. MEPROBAMATE [Concomitant]
     Route: 048
     Dates: start: 20070810
  12. DEPAKENE [Concomitant]
     Route: 048
     Dates: start: 20070810

REACTIONS (2)
  - HYPOGLYCAEMIA [None]
  - RENAL FAILURE [None]
